FAERS Safety Report 13488292 (Version 1)
Quarter: 2017Q2

REPORT INFORMATION
  Report Type: Spontaneous
  Country: US (occurrence: US)
  Receive Date: 20170426
  Receipt Date: 20170426
  Transmission Date: 20170830
  Serious: Yes (Hospitalization)
  Sender: FDA-Public Use
  Company Number: None

PATIENT
  Age: 6 Year
  Sex: Male
  Weight: 24.9 kg

DRUGS (4)
  1. ERWINIA ASPARAGINASE [Suspect]
     Active Substance: ASPARAGINASE ERWINIA CHRYSANTHEMI
     Dates: end: 20170404
  2. VINCRISTINE SULFATE. [Suspect]
     Active Substance: VINCRISTINE SULFATE
     Dates: end: 20170324
  3. CYTARABINE. [Suspect]
     Active Substance: CYTARABINE
     Dates: end: 20170402
  4. DEXAMETHASONE. [Suspect]
     Active Substance: DEXAMETHASONE
     Dates: end: 20170329

REACTIONS (12)
  - Chills [None]
  - Crepitations [None]
  - Bronchiolitis [None]
  - Pancytopenia [None]
  - Streptococcus test positive [None]
  - Body temperature increased [None]
  - Tachypnoea [None]
  - Grunting [None]
  - Anal fissure [None]
  - Respiratory tract infection [None]
  - Neutropenia [None]
  - Hypotension [None]

NARRATIVE: CASE EVENT DATE: 20170410
